FAERS Safety Report 17482654 (Version 1)
Quarter: 2020Q1

REPORT INFORMATION
  Report Type: Spontaneous
  Country: US (occurrence: US)
  Receive Date: 20200218
  Receipt Date: 20200218
  Transmission Date: 20200409
  Serious: Yes (Hospitalization)
  Sender: FDA-Public Use
  Company Number: None

PATIENT
  Sex: Male

DRUGS (12)
  1. ESBRIET [Suspect]
     Active Substance: PIRFENIDONE
     Indication: IDIOPATHIC PULMONARY FIBROSIS
     Dosage: ?          OTHER DOSE:3 CAPS;?
     Route: 048
     Dates: start: 20171230
  2. POTASSIUM [Concomitant]
     Active Substance: POTASSIUM
  3. TRAMADOL HCL [Concomitant]
     Active Substance: TRAMADOL HYDROCHLORIDE
  4. AMLODIPINE [Concomitant]
     Active Substance: AMLODIPINE BESYLATE
  5. LASIX [Concomitant]
     Active Substance: FUROSEMIDE
  6. MULTIVIT/FL CHW [Concomitant]
  7. CRESTOR [Concomitant]
     Active Substance: ROSUVASTATIN CALCIUM
  8. DICLOFENAC [Concomitant]
     Active Substance: DICLOFENAC
  9. ZANTAC [Concomitant]
     Active Substance: RANITIDINE HYDROCHLORIDE
  10. METOPROL TAR [Concomitant]
  11. NITROGLYCERIN. [Suspect]
     Active Substance: NITROGLYCERIN
  12. BRILINTA [Concomitant]
     Active Substance: TICAGRELOR

REACTIONS (3)
  - Procedural pain [None]
  - Back pain [None]
  - Product dose omission [None]
